FAERS Safety Report 8119339-1 (Version None)
Quarter: 2012Q1

REPORT INFORMATION
  Report Type: 
  Country: None (occurrence: None)
  Receive Date: 20120207
  Receipt Date: 20120202
  Transmission Date: 20120608
  Serious: Yes (Other)
  Sender: FDA-Public Use
  Company Number: BR-JNJFOC-20120201950

PATIENT
  Age: 62 Year
  Sex: Male

DRUGS (4)
  1. RISPERDAL [Suspect]
     Indication: SCHIZOPHRENIA
     Dosage: ONE TABLET IN THE MORNING AND ONE TABLET IN THE EVENING
     Route: 048
  2. BIPERIDEN HYDROCHLORIDE TAB [Concomitant]
     Route: 065
  3. RISPERDAL CONSTA [Suspect]
     Indication: SCHIZOPHRENIA
     Route: 030
  4. GLUCOVANCE [Concomitant]
     Indication: DIABETES MELLITUS
     Route: 065

REACTIONS (1)
  - GASTROINTESTINAL CARCINOMA [None]
